FAERS Safety Report 20458078 (Version 3)
Quarter: 2022Q3

REPORT INFORMATION
  Report Type: Spontaneous
  Country: CN (occurrence: CN)
  Receive Date: 20220211
  Receipt Date: 20220804
  Transmission Date: 20221027
  Serious: No
  Sender: FDA-Public Use
  Company Number: CN-Blueprint Medicines Corporation-SO-CN-2022-000358

PATIENT
  Age: 48 Year
  Sex: Female

DRUGS (2)
  1. AYVAKIT [Suspect]
     Active Substance: AVAPRITINIB
     Indication: Gastrointestinal stromal tumour
     Dosage: 150 MILLIGRAM, UNKNOWN
     Route: 048
     Dates: start: 20210630, end: 20220110
  2. AYVAKIT [Suspect]
     Active Substance: AVAPRITINIB
     Dosage: 150 MILLIGRAM, UNKNOWN
     Route: 048
     Dates: start: 2022

REACTIONS (3)
  - Face oedema [Not Recovered/Not Resolved]
  - Memory impairment [Not Recovered/Not Resolved]
  - Rash [Not Recovered/Not Resolved]

NARRATIVE: CASE EVENT DATE: 20210701
